FAERS Safety Report 7646507-5 (Version None)
Quarter: 2011Q3

REPORT INFORMATION
  Report Type: 
  Country: None (occurrence: None)
  Receive Date: 20110801
  Receipt Date: 20110720
  Transmission Date: 20111222
  Serious: Yes (Life-Threatening, Hospitalization)
  Sender: FDA-Public Use
  Company Number: JP-JNJFOC-20101201616

PATIENT
  Sex: Female
  Weight: 48 kg

DRUGS (5)
  1. METHOTREXATE [Suspect]
     Indication: RHEUMATOID ARTHRITIS
     Route: 048
     Dates: start: 20060608, end: 20101108
  2. REMICADE [Suspect]
     Dosage: 22 INFUSIONS; DATES UNSPECIFIED
     Route: 042
     Dates: start: 20100826
  3. REMICADE [Suspect]
     Dosage: A TOTAL OF 24 INFUSIONS
     Route: 042
     Dates: start: 20101021
  4. REMICADE [Suspect]
     Dosage: 22 INFUSIONS; DATES UNSPECIFIED
     Route: 042
  5. REMICADE [Suspect]
     Indication: RHEUMATOID ARTHRITIS
     Route: 042
     Dates: start: 20070614

REACTIONS (1)
  - LYMPHOMA [None]
